FAERS Safety Report 20141262 (Version 1)
Quarter: 2021Q4

REPORT INFORMATION
  Report Type: Spontaneous
  Country: US (occurrence: US)
  Receive Date: 20211202
  Receipt Date: 20211202
  Transmission Date: 20220303
  Serious: Yes (Other)
  Sender: FDA-Public Use
  Company Number: US-SA-SAC20211129000919

PATIENT
  Age: 51 Year
  Sex: Female

DRUGS (1)
  1. DUPIXENT [Suspect]
     Active Substance: DUPILUMAB
     Indication: Sinus polyp degeneration
     Dosage: 300 MG (DOSE: 300 MG/2ML)
     Route: 058
     Dates: start: 20210122

REACTIONS (9)
  - Rectal haemorrhage [Unknown]
  - Colitis [Unknown]
  - Gastritis [Unknown]
  - Gastric pH decreased [Unknown]
  - Diverticulum [Unknown]
  - Stress [Unknown]
  - Memory impairment [Unknown]
  - Cholecystectomy [Unknown]
  - Product use in unapproved indication [Unknown]

NARRATIVE: CASE EVENT DATE: 20210101
